FAERS Safety Report 10633727 (Version 16)
Quarter: 2015Q4

REPORT INFORMATION
  Report Type: Report from Study
  Country: CA (occurrence: CA)
  Receive Date: 20141205
  Receipt Date: 20151127
  Transmission Date: 20160304
  Serious: Yes (Hospitalization, Other)
  Sender: FDA-Public Use
  Company Number: PHHY2014CA156435

PATIENT
  Age: 76 Year
  Sex: Male
  Weight: 50 kg

DRUGS (7)
  1. SANDOSTATIN LAR DEPOT [Suspect]
     Active Substance: OCTREOTIDE ACETATE
     Indication: FISTULA
     Dosage: 20 MG, TIW
     Route: 030
  2. PROPRANOLOL [Concomitant]
     Active Substance: PROPRANOLOL\PROPRANOLOL HYDROCHLORIDE
     Indication: PRODUCT USED FOR UNKNOWN INDICATION
     Dosage: 5 MG, TID
     Route: 048
  3. SANDOSTATIN [Suspect]
     Active Substance: OCTREOTIDE ACETATE
     Indication: PANCREATITIS
     Dosage: 100 UG, Q8H
     Route: 058
     Dates: start: 20140925
  4. SANDOSTATIN LAR DEPOT [Suspect]
     Active Substance: OCTREOTIDE ACETATE
     Indication: PANCREATITIS
     Dosage: 20 MG, QMO
     Route: 030
     Dates: start: 20141031
  5. SANDOSTATIN LAR DEPOT [Suspect]
     Active Substance: OCTREOTIDE ACETATE
     Dosage: 30 MG, QMO (EVERY 4 WEEKS)
     Route: 030
  6. SANDOSTATIN [Suspect]
     Active Substance: OCTREOTIDE ACETATE
     Indication: FISTULA
  7. SANDOSTATIN LAR DEPOT [Suspect]
     Active Substance: OCTREOTIDE ACETATE
     Dosage: 30 MG, TIW
     Route: 030

REACTIONS (13)
  - Pancreatic disorder [Unknown]
  - Weight decreased [Unknown]
  - Gastrointestinal bacterial infection [Unknown]
  - Restlessness [Unknown]
  - Blood pressure diastolic decreased [Unknown]
  - Asthenia [Unknown]
  - Heart rate decreased [Unknown]
  - Herpes zoster [Unknown]
  - Confusional state [Unknown]
  - Off label use [Unknown]
  - Pseudocyst [Unknown]
  - Gastric fistula [Unknown]
  - Enzyme level increased [Unknown]

NARRATIVE: CASE EVENT DATE: 2014
